FAERS Safety Report 7429849-8 (Version None)
Quarter: 2011Q2

REPORT INFORMATION
  Report Type: 
  Country: None (occurrence: None)
  Receive Date: 20110421
  Receipt Date: 20101116
  Transmission Date: 20111010
  Serious: Yes (Hospitalization)
  Sender: FDA-Public Use
  Company Number: US-BAYER-201016007NA

PATIENT
  Age: 32 Year
  Sex: Female
  Weight: 144.55 kg

DRUGS (17)
  1. ASPIRIN [Concomitant]
  2. CLARINEX [Concomitant]
  3. ZOLOFT [Concomitant]
     Indication: MOOD SWINGS
  4. ZOFRAN [Concomitant]
  5. PROTONIX [Concomitant]
  6. HYDROCHLOROTHIAZIDE [Concomitant]
     Indication: HYPERTENSION
  7. METFORMIN [Concomitant]
  8. ZOSYN [Concomitant]
  9. YAZ [Suspect]
     Route: 048
  10. PROGESTERONE [Concomitant]
  11. YASMIN [Suspect]
     Indication: CONTRACEPTION
     Route: 048
     Dates: start: 20051201, end: 20070601
  12. IBUPROFEN [Concomitant]
  13. BENICAR [Concomitant]
  14. WELLBUTRIN SR [Concomitant]
     Dosage: UNK
     Dates: end: 20070730
  15. ALDOMET [Concomitant]
     Dosage: UNK
     Dates: end: 20070730
  16. PERCOCET [Concomitant]
  17. DILAUDID [Concomitant]

REACTIONS (4)
  - CHOLECYSTECTOMY [None]
  - CHOLELITHIASIS [None]
  - PANCREATIC INJURY [None]
  - PANCREATITIS [None]
